FAERS Safety Report 7915867-X (Version None)
Quarter: 2011Q4

REPORT INFORMATION
  Report Type: 
  Country: None (occurrence: None)
  Receive Date: 20111115
  Receipt Date: 20111101
  Transmission Date: 20120403
  Serious: Yes (Hospitalization, Other)
  Sender: FDA-Public Use
  Company Number: CA-ROCHE-GNE277857

PATIENT
  Sex: Female
  Weight: 80.086 kg

DRUGS (6)
  1. ADVAIR DISKUS 100/50 [Concomitant]
     Indication: PRODUCT USED FOR UNKNOWN INDICATION
     Dosage: UNK
  2. ALBUTEROL SULFATE AUTOHALER [Concomitant]
     Indication: PRODUCT USED FOR UNKNOWN INDICATION
  3. QVAR 40 [Concomitant]
     Indication: PRODUCT USED FOR UNKNOWN INDICATION
  4. OMALIZUMAB [Suspect]
     Indication: ASTHMA
     Dosage: 150 MG, Q4W
     Dates: start: 20050613
  5. ALVESCO [Concomitant]
     Indication: PRODUCT USED FOR UNKNOWN INDICATION
     Dosage: UNK
  6. REACTINE (CANADA) [Concomitant]
     Indication: PRODUCT USED FOR UNKNOWN INDICATION

REACTIONS (30)
  - SINUS CONGESTION [None]
  - SECRETION DISCHARGE [None]
  - SUTURE INSERTION [None]
  - FORCED EXPIRATORY VOLUME DECREASED [None]
  - PULMONARY CONGESTION [None]
  - BLOOD PRESSURE SYSTOLIC INCREASED [None]
  - RESPIRATORY DISORDER [None]
  - PULMONARY FUNCTION TEST ABNORMAL [None]
  - DRUG DOSE OMISSION [None]
  - OXYGEN SATURATION DECREASED [None]
  - SINUSITIS [None]
  - SURGERY [None]
  - SCAR [None]
  - DYSPNOEA [None]
  - RESPIRATORY DISTRESS [None]
  - MOBILITY DECREASED [None]
  - MALAISE [None]
  - NASOPHARYNGITIS [None]
  - DIZZINESS [None]
  - ASTHMA [None]
  - COUGH [None]
  - WOUND INFECTION [None]
  - PEAK EXPIRATORY FLOW RATE ABNORMAL [None]
  - MUSCULOSKELETAL STIFFNESS [None]
  - CONTUSION [None]
  - FALL [None]
  - SWELLING [None]
  - HEART RATE [None]
  - DEPRESSION [None]
  - ASTHENIA [None]
